FAERS Safety Report 20030947 (Version 1)
Quarter: 2021Q4

REPORT INFORMATION
  Report Type: Other
  Country: None (occurrence: ID)
  Receive Date: 20211103
  Receipt Date: 20211103
  Transmission Date: 20220304
  Serious: Yes (Death, Hospitalization, Other)
  Sender: FDA-Public Use
  Company Number: ID-BIOLOGICAL E. LTD-2121432

PATIENT
  Age: 54 Year
  Sex: Female

DRUGS (9)
  1. HEPARIN [Suspect]
     Active Substance: HEPARIN SODIUM
     Indication: Product used for unknown indication
     Route: 042
  2. ATORVASTATIN CALCIUM [Concomitant]
     Active Substance: ATORVASTATIN CALCIUM
     Route: 065
  3. AMLODIPINE [Concomitant]
     Active Substance: AMLODIPINE BESYLATE
     Route: 065
  4. RAMIPRIL [Concomitant]
     Active Substance: RAMIPRIL
     Route: 065
  5. METFORMIN [Concomitant]
     Active Substance: METFORMIN HYDROCHLORIDE
     Route: 065
  6. PENTOXIFYLLINE [Concomitant]
     Active Substance: PENTOXIFYLLINE
     Route: 065
  7. ASPIRIN [Concomitant]
     Active Substance: ASPIRIN
     Route: 065
  8. Clistazol [Concomitant]
     Route: 065
  9. TSA Capsule [Concomitant]
     Route: 065

REACTIONS (3)
  - Condition aggravated [Fatal]
  - Acute respiratory distress syndrome [Fatal]
  - Septic shock [Fatal]
